FAERS Safety Report 9629567 (Version 1)
Quarter: 2013Q4

REPORT INFORMATION
  Report Type: Report from Study
  Country: BR (occurrence: BR)
  Receive Date: 20131017
  Receipt Date: 20131017
  Transmission Date: 20140711
  Serious: Yes (Other)
  Sender: FDA-Public Use
  Company Number: BR-ROCHE-1288879

PATIENT
  Age: 49 Year
  Sex: Female
  Weight: 74 kg

DRUGS (3)
  1. INTERFERON ALFA-2A [Suspect]
     Indication: HEPATITIS C
     Route: 065
     Dates: start: 20091216
  2. RIBAVIRIN [Suspect]
     Indication: HEPATITIS C
     Route: 048
     Dates: start: 20091216
  3. REBETRON [Concomitant]
     Indication: HEPATITIS C
     Route: 065

REACTIONS (1)
  - Hepatitis C [Unknown]
